FAERS Safety Report 8075582-1 (Version None)
Quarter: 2012Q1

REPORT INFORMATION
  Report Type: 
  Country: None (occurrence: None)
  Receive Date: 20120127
  Receipt Date: 20120120
  Transmission Date: 20120608
  Serious: Yes (Hospitalization)
  Sender: FDA-Public Use
  Company Number: ES-AMGEN-ESPCT2012004416

PATIENT
  Age: 56 Year
  Sex: Male

DRUGS (5)
  1. FLUOROURACIL [Concomitant]
     Indication: COLORECTAL CANCER METASTATIC
     Dosage: 400 MG/M2, Q2WK
     Route: 042
     Dates: start: 20111117, end: 20111229
  2. OXALIPLATIN [Concomitant]
     Indication: COLORECTAL CANCER METASTATIC
     Dosage: 85 MG/M2, Q2WK
     Route: 042
     Dates: start: 20111117, end: 20111229
  3. PANITUMUMAB [Suspect]
     Indication: COLORECTAL CANCER METASTATIC
     Dosage: 6 MG/KG, Q2WK
     Route: 042
     Dates: start: 20111117, end: 20111229
  4. FLUOROURACIL [Concomitant]
     Dosage: 2400 MG/KG, Q2WK
     Route: 042
     Dates: start: 20111117, end: 20111229
  5. LEUCOVORIN CALCIUM [Concomitant]
     Dosage: 400 MG/M2, Q2WK
     Route: 042
     Dates: start: 20111117, end: 20111229

REACTIONS (1)
  - HYPERCOAGULATION [None]
